FAERS Safety Report 18847419 (Version 1)
Quarter: 2021Q1

REPORT INFORMATION
  Report Type: Report from Study
  Country: US (occurrence: US)
  Receive Date: 20210203
  Receipt Date: 20210203
  Transmission Date: 20210419
  Serious: No
  Sender: FDA-Public Use
  Company Number: US-EXELIXIS-CABO-20032058

PATIENT
  Sex: Female

DRUGS (2)
  1. CABOMETYX [Suspect]
     Active Substance: CABOZANTINIB S-MALATE
     Dosage: 40 MG, QD (WITH FOOD)
  2. CABOMETYX [Suspect]
     Active Substance: CABOZANTINIB S-MALATE
     Indication: ADRENAL GLAND CANCER
     Dosage: 40 MG, QD
     Dates: start: 20200719, end: 20200918

REACTIONS (6)
  - Headache [Unknown]
  - Contusion [Unknown]
  - Oral pain [Recovering/Resolving]
  - Fall [Unknown]
  - Malignant neoplasm progression [Unknown]
  - Off label use [Unknown]
